FAERS Safety Report 13736943 (Version 1)
Quarter: 2017Q3

REPORT INFORMATION
  Report Type: Spontaneous
  Country: CN (occurrence: CN)
  Receive Date: 20170710
  Receipt Date: 20170710
  Transmission Date: 20171127
  Serious: Yes (Hospitalization)
  Sender: FDA-Public Use
  Company Number: CN-PFIZER INC-2017294588

PATIENT
  Age: 83 Year
  Sex: Male
  Weight: 75 kg

DRUGS (1)
  1. LIPITOR [Suspect]
     Active Substance: ATORVASTATIN CALCIUM
     Indication: HYPERTENSION
     Dosage: 20 MG, 1X/DAY
     Route: 048
     Dates: start: 20170315, end: 20170413

REACTIONS (3)
  - Urine bilirubin increased [Recovering/Resolving]
  - Jaundice [Recovering/Resolving]
  - Transaminases increased [Unknown]

NARRATIVE: CASE EVENT DATE: 201704
